FAERS Safety Report 20334559 (Version 2)
Quarter: 2022Q1

REPORT INFORMATION
  Report Type: Other
  Country: US (occurrence: None)
  Receive Date: 20220114
  Receipt Date: 20220120
  Transmission Date: 20220423
  Serious: Yes (Other)
  Sender: FDA-Public Use
  Company Number: US-ROCHE-2996117

PATIENT

DRUGS (5)
  1. ATEZOLIZUMAB [Suspect]
     Active Substance: ATEZOLIZUMAB
     Indication: Neoplasm malignant
     Route: 065
  2. AVELUMAB [Suspect]
     Active Substance: AVELUMAB
     Indication: Neoplasm malignant
     Route: 065
  3. DURVALUMAB [Suspect]
     Active Substance: DURVALUMAB
     Indication: Neoplasm malignant
     Route: 065
  4. NIVOLUMAB [Suspect]
     Active Substance: NIVOLUMAB
     Indication: Neoplasm malignant
     Route: 065
  5. PEMBROLIZUMAB [Suspect]
     Active Substance: PEMBROLIZUMAB
     Indication: Neoplasm malignant
     Route: 065

REACTIONS (30)
  - Thrombocytopenia [Unknown]
  - Arrhythmia [Unknown]
  - Anaemia [Unknown]
  - Cardiac failure [Unknown]
  - Vasculitis [Unknown]
  - Oedema peripheral [Unknown]
  - Acquired haemophilia [Unknown]
  - Haemolytic anaemia [Unknown]
  - Myocarditis [Unknown]
  - Pericarditis [Unknown]
  - Pneumonitis [Unknown]
  - Encephalitis [Unknown]
  - Guillain-Barre syndrome [Unknown]
  - Myositis [Unknown]
  - Myelitis transverse [Unknown]
  - Stevens-Johnson syndrome [Unknown]
  - Toxic epidermal necrolysis [Unknown]
  - Blepharitis [Unknown]
  - Embolism venous [Unknown]
  - Adrenal insufficiency [Unknown]
  - Diabetes mellitus [Unknown]
  - Hypothalamo-pituitary disorder [Unknown]
  - Hyperthyroidism [Unknown]
  - Arthritis [Unknown]
  - Autonomic neuropathy [Unknown]
  - Neuropathy peripheral [Unknown]
  - Myalgia [Unknown]
  - Colitis [Unknown]
  - Hepatitis [Unknown]
  - Nephritis [Unknown]
